FAERS Safety Report 11091516 (Version 1)
Quarter: 2015Q2

REPORT INFORMATION
  Report Type: Spontaneous
  Country: SI (occurrence: SI)
  Receive Date: 20150505
  Receipt Date: 20150505
  Transmission Date: 20150821
  Serious: Yes (Life-Threatening, Hospitalization)
  Sender: FDA-Public Use
  Company Number: SI-MYLANLABS-2015M1014934

PATIENT

DRUGS (1)
  1. CAPECITABINE. [Suspect]
     Active Substance: CAPECITABINE
     Indication: RECTAL ADENOCARCINOMA
     Dosage: 2500 MG/12 HOURS
     Route: 065

REACTIONS (2)
  - Mesenteric artery thrombosis [Recovering/Resolving]
  - Short-bowel syndrome [Not Recovered/Not Resolved]
